FAERS Safety Report 4619865-3 (Version None)
Quarter: 2005Q1

REPORT INFORMATION
  Report Type: 
  Country: None (occurrence: None)
  Receive Date: 20050322
  Receipt Date: 20050310
  Transmission Date: 20050727
  Serious: Yes (Death)
  Sender: FDA-Public Use
  Company Number: GXKR2005ES00744

PATIENT
  Age: 76 Year
  Sex: Male

DRUGS (3)
  1. METFORMIN HCL [Suspect]
     Indication: DIABETES MELLITUS
     Dosage: 2250 MG/D
  2. ASPIRIN [Concomitant]
  3. RAMIPRIL [Concomitant]

REACTIONS (12)
  - ANURIA [None]
  - DEHYDRATION [None]
  - DRUG INEFFECTIVE [None]
  - DRY SKIN [None]
  - HYPERKALAEMIA [None]
  - HYPOTENSION [None]
  - LACTIC ACIDOSIS [None]
  - LEUKOCYTOSIS [None]
  - MUCOSAL DRYNESS [None]
  - RENAL FAILURE [None]
  - SINUS TACHYCARDIA [None]
  - VOMITING [None]
